FAERS Safety Report 5424162-2 (Version None)
Quarter: 2007Q3

REPORT INFORMATION
  Report Type: 
  Country: None (occurrence: None)
  Receive Date: 20070823
  Receipt Date: 20070813
  Transmission Date: 20080115
  Serious: Yes (Other)
  Sender: FDA-Public Use
  Company Number: DE-PFIZER INC-2007067094

PATIENT
  Age: 62 Year
  Sex: Female

DRUGS (3)
  1. ATORVASTATIN CALCIUM [Suspect]
     Dosage: TEXT:1/0 OF 20MG EVERY 2ND DAY TDD:10MG
     Route: 048
     Dates: start: 19970101, end: 20070807
  2. DOXYCYCLINE [Interacting]
     Indication: TOOTH DISORDER
     Route: 048
     Dates: start: 20070601, end: 20070101
  3. LEVOTHYROXINE SODIUM [Concomitant]

REACTIONS (7)
  - ALANINE AMINOTRANSFERASE INCREASED [None]
  - ANTINUCLEAR ANTIBODY INCREASED [None]
  - DRUG INTERACTION [None]
  - HEPATIC STEATOSIS [None]
  - MYALGIA [None]
  - RED BLOOD CELL SEDIMENTATION RATE INCREASED [None]
  - SERUM FERRITIN INCREASED [None]
